FAERS Safety Report 14993869 (Version 2)
Quarter: 2018Q3

REPORT INFORMATION
  Report Type: Spontaneous
  Country: US (occurrence: US)
  Receive Date: 20180611
  Receipt Date: 20180702
  Transmission Date: 20181010
  Serious: No
  Sender: FDA-Public Use
  Company Number: US-HORIZON-VIM-0947-2018

PATIENT
  Age: 45 Year
  Sex: Female

DRUGS (1)
  1. VIMOVO [Suspect]
     Active Substance: ESOMEPRAZOLE MAGNESIUM\NAPROXEN
     Indication: LIGAMENT SPRAIN
     Dosage: BID

REACTIONS (2)
  - Abdominal distension [Recovered/Resolved]
  - Off label use [Unknown]
